FAERS Safety Report 9182890 (Version 2)
Quarter: 2012Q4

REPORT INFORMATION
  Report Type: 
  Country: US (occurrence: US)
  Receive Date: 20121031
  Receipt Date: 20121205
  Transmission Date: 20130627
  Serious: Yes (Other)
  Sender: FDA-Public Use
  Company Number: US-RB-046122-12

PATIENT
  Sex: Female

DRUGS (7)
  1. SUBOXONE FILM [Suspect]
     Indication: DRUG DEPENDENCE
     Dosage: Suboxone film
     Route: 060
     Dates: start: 201202
  2. BENZODIAZEPINES [Suspect]
     Indication: PRODUCT USED FOR UNKNOWN INDICATION
     Dosage: Dosing details unknown
     Route: 065
  3. XANAX [Suspect]
     Indication: DRUG ABUSE
     Dosage: Dosing details unknown
     Route: 065
  4. ADDERALL [Suspect]
     Indication: ATTENTION DEFICIT/HYPERACTIVITY DISORDER
     Dosage: Dosing details unknown; intermittantly;
     Route: 065
  5. ADDERALL [Suspect]
     Indication: SUBSTANCE ABUSE
     Dosage: Dosing details unknown; intermittantly;
     Route: 065
  6. THC [Suspect]
     Indication: PRODUCT USED FOR UNKNOWN INDICATION
     Dosage: Dosing details unknown
     Route: 065
  7. OPIATES [Suspect]
     Indication: PRODUCT USED FOR UNKNOWN INDICATION
     Dosage: Dosing details unknown
     Route: 065

REACTIONS (3)
  - Convulsion [Recovered/Resolved]
  - Head injury [Unknown]
  - Limb injury [Unknown]
